FAERS Safety Report 14719382 (Version 2)
Quarter: 2018Q2

REPORT INFORMATION
  Report Type: Spontaneous
  Country: US (occurrence: US)
  Receive Date: 20180405
  Receipt Date: 20180419
  Transmission Date: 20180711
  Serious: No
  Sender: FDA-Public Use
  Company Number: US-JNJFOC-20180324592

PATIENT
  Age: 31 Year
  Sex: Male
  Weight: 83.92 kg

DRUGS (3)
  1. MENS ROGAINE EXTRA STRENGTH [Suspect]
     Active Substance: MINOXIDIL
     Indication: ALOPECIA
     Dosage: 1 CAPFUL
     Route: 061
     Dates: start: 20180201
  2. PROPECIA [Concomitant]
     Active Substance: FINASTERIDE
     Indication: PRODUCT USED FOR UNKNOWN INDICATION
     Route: 065
  3. MENS ROGAINE EXTRA STRENGTH [Suspect]
     Active Substance: MINOXIDIL
     Route: 061

REACTIONS (6)
  - Product administered at inappropriate site [Unknown]
  - Inappropriate schedule of drug administration [Unknown]
  - Incorrect drug administration duration [Unknown]
  - Headache [Not Recovered/Not Resolved]
  - Rash [Not Recovered/Not Resolved]
  - Product physical consistency issue [Unknown]

NARRATIVE: CASE EVENT DATE: 20180201
